FAERS Safety Report 9139830 (Version 1)
Quarter: 2013Q1

REPORT INFORMATION
  Report Type: Spontaneous
  Country: US (occurrence: US)
  Receive Date: 20130305
  Receipt Date: 20130305
  Transmission Date: 20140127
  Serious: No
  Sender: FDA-Public Use
  Company Number: US-ENDO PHARMACEUTICALS INC.-SPLN20120173

PATIENT
  Age: 10 None
  Sex: Male

DRUGS (2)
  1. SUPPRELIN LA [Suspect]
     Indication: PRODUCT USED FOR UNKNOWN INDICATION
     Route: 058
     Dates: start: 20111213, end: 20121030
  2. SUPPRELIN LA [Suspect]
     Route: 058
     Dates: start: 20121030

REACTIONS (2)
  - Testicular hypertrophy [Recovered/Resolved]
  - Drug ineffective [Recovered/Resolved]
